FAERS Safety Report 4379391-6 (Version None)
Quarter: 2004Q2

REPORT INFORMATION
  Report Type: 
  Country: None (occurrence: None)
  Receive Date: 20040617
  Receipt Date: 20040607
  Transmission Date: 20050107
  Serious: Yes (Life-Threatening, Hospitalization, Other)
  Sender: FDA-Public Use
  Company Number: US-JNJFOC-20040404183

PATIENT
  Sex: Female
  Weight: 83.01 kg

DRUGS (17)
  1. REMICADE [Suspect]
     Route: 042
  2. REMICADE [Suspect]
     Indication: RHEUMATOID ARTHRITIS
     Route: 042
  3. METHOTREXATE [Concomitant]
  4. FOLIC ACID [Concomitant]
  5. ZESTORETIC [Concomitant]
  6. ZESTORETIC [Concomitant]
  7. MULTIVITE [Concomitant]
  8. MULTIVITE [Concomitant]
  9. MULTIVITE [Concomitant]
  10. MULTIVITE [Concomitant]
  11. MULTIVITE [Concomitant]
  12. MULTIVITE [Concomitant]
  13. CALTRATE [Concomitant]
  14. VITAMIN E [Concomitant]
  15. CELEBREX [Concomitant]
  16. ASPIRIN [Concomitant]
  17. DICLOFENAC SODIUM [Concomitant]

REACTIONS (4)
  - HAEMOGLOBIN DECREASED [None]
  - METASTASES TO LUNG [None]
  - METASTASES TO SPINE [None]
  - METASTATIC RENAL CELL CARCINOMA [None]
